FAERS Safety Report 10463248 (Version 4)
Quarter: 2015Q1

REPORT INFORMATION
  Report Type: Spontaneous
  Country: US (occurrence: US)
  Receive Date: 20140919
  Receipt Date: 20150303
  Transmission Date: 20150720
  Serious: Yes (Death)
  Sender: FDA-Public Use
  Company Number: US-BIOGENIDEC-2014BI095491

PATIENT
  Age: 51 Year
  Sex: Male
  Weight: 130 kg

DRUGS (21)
  1. LASIX [Concomitant]
     Active Substance: FUROSEMIDE
     Dates: start: 20131203
  2. RANITIDINE [Concomitant]
     Active Substance: RANITIDINE\RANITIDINE HYDROCHLORIDE
     Dates: start: 20131203
  3. LOVASTATIN. [Concomitant]
     Active Substance: LOVASTATIN
  4. VENTOLIN [Concomitant]
     Active Substance: ALBUTEROL SULFATE
     Dates: start: 20140512
  5. CARDIZEM [Concomitant]
     Active Substance: DILTIAZEM HYDROCHLORIDE
     Dates: start: 20120628
  6. LIDOCAINE. [Concomitant]
     Active Substance: LIDOCAINE
     Dates: start: 20131104
  7. LOSARTAN [Concomitant]
     Active Substance: LOSARTAN
     Dates: start: 20131121
  8. SPIRINOLACTONE [Concomitant]
     Dates: start: 20131203
  9. TECFIDERA [Suspect]
     Active Substance: DIMETHYL FUMARATE
     Indication: MULTIPLE SCLEROSIS
     Route: 048
     Dates: start: 20140418
  10. SPIRIVA [Concomitant]
     Active Substance: TIOTROPIUM BROMIDE MONOHYDRATE
     Dates: start: 20131121
  11. TECFIDERA [Suspect]
     Active Substance: DIMETHYL FUMARATE
     Indication: MULTIPLE SCLEROSIS
     Route: 048
     Dates: start: 20140421
  12. AMPYRA [Concomitant]
     Active Substance: DALFAMPRIDINE
     Indication: PRODUCT USED FOR UNKNOWN INDICATION
     Route: 048
     Dates: start: 20131203
  13. FOLIC ACID. [Concomitant]
     Active Substance: FOLIC ACID
     Dates: start: 20131203
  14. GABLOFEN [Concomitant]
     Active Substance: BACLOFEN
     Dates: start: 20120628
  15. LIDODERM [Concomitant]
     Active Substance: LIDOCAINE
     Dates: start: 20140613
  16. LIORESAL [Concomitant]
     Active Substance: BACLOFEN
     Dates: start: 20130305
  17. VITAMIN B1 [Concomitant]
     Active Substance: THIAMINE HYDROCHLORIDE
     Dates: start: 20120628
  18. LEVAQUIN [Concomitant]
     Active Substance: LEVOFLOXACIN
     Dates: start: 20140729
  19. VITAMIN D [Concomitant]
     Active Substance: CHOLECALCIFEROL
     Dates: start: 20131008
  20. TRAMADOL [Concomitant]
     Active Substance: TRAMADOL
     Dates: start: 20131015
  21. KLOR-CON [Concomitant]
     Active Substance: POTASSIUM CHLORIDE
     Dates: start: 20131203

REACTIONS (5)
  - Death [Fatal]
  - Urinary incontinence [Unknown]
  - Cirrhosis alcoholic [Unknown]
  - Alcoholism [Unknown]
  - Ascites [Unknown]

NARRATIVE: CASE EVENT DATE: 20140418
